FAERS Safety Report 9191267 (Version 1)
Quarter: 2013Q1

REPORT INFORMATION
  Report Type: Spontaneous
  Country: US (occurrence: US)
  Receive Date: 20130326
  Receipt Date: 20130326
  Transmission Date: 20140127
  Serious: No
  Sender: FDA-Public Use
  Company Number: US-ASTRAZENECA-2013SE15697

PATIENT
  Age: 61 Year
  Sex: Male
  Weight: 102.1 kg

DRUGS (8)
  1. CRESTOR [Suspect]
     Route: 048
  2. CRESTOR [Suspect]
     Route: 048
  3. CRESTOR [Suspect]
     Route: 048
  4. CRESTOR [Suspect]
     Route: 048
  5. GABAPENTIN [Suspect]
     Indication: PAIN
     Route: 048
     Dates: start: 201212
  6. BABY ASPIRIN [Concomitant]
  7. INSULIN [Concomitant]
     Indication: DIABETES MELLITUS
  8. BETAINE [Concomitant]
     Indication: NAUSEA

REACTIONS (2)
  - Renal pain [Unknown]
  - Blood glucose increased [Unknown]
